FAERS Safety Report 18539432 (Version 1)
Quarter: 2020Q4

REPORT INFORMATION
  Report Type: Spontaneous
  Country: US (occurrence: US)
  Receive Date: 20201124
  Receipt Date: 20201124
  Transmission Date: 20210114
  Serious: No
  Sender: FDA-Public Use
  Company Number: US-KERYX BIOPHARMACEUTICALS INC.-2020US006363

PATIENT
  Age: 59 Year
  Sex: Male

DRUGS (2)
  1. AURYXIA [Suspect]
     Active Substance: TETRAFERRIC TRICITRATE DECAHYDRATE
     Indication: HYPERPHOSPHATAEMIA
     Dosage: 2 GRAM (TABLETS), WITH MEALS
     Route: 048
     Dates: start: 2019
  2. AURYXIA [Suspect]
     Active Substance: TETRAFERRIC TRICITRATE DECAHYDRATE
     Dosage: 1 GRAM (TABLET), QD
     Route: 048
     Dates: end: 202002

REACTIONS (1)
  - Faeces discoloured [Recovered/Resolved]
